FAERS Safety Report 16109364 (Version 1)
Quarter: 2019Q1

REPORT INFORMATION
  Report Type: Spontaneous
  Country: PT (occurrence: IT)
  Receive Date: 20190324
  Receipt Date: 20190324
  Transmission Date: 20190418
  Serious: Yes (Hospitalization, Other)
  Sender: FDA-Public Use
  Company Number: PT-ACCORD-114854

PATIENT
  Age: 53 Year
  Sex: Female

DRUGS (7)
  1. ATROPINE. [Concomitant]
     Active Substance: ATROPINE
  2. SUXAMETHONIUM [Concomitant]
     Active Substance: SUCCINYLCHOLINE
  3. RISPERIDONE. [Interacting]
     Active Substance: RISPERIDONE
     Indication: MAJOR DEPRESSION
  4. RISPERIDONE. [Interacting]
     Active Substance: RISPERIDONE
     Indication: MAJOR DEPRESSION
  5. THIOPENTAL [Concomitant]
     Active Substance: THIOPENTAL
  6. BUPROPION/BUPROPION HYDROCHLORIDE [Interacting]
     Active Substance: BUPROPION HYDROCHLORIDE
     Indication: MAJOR DEPRESSION
     Dosage: SLOW RELEASE (TITRATED AT 300 MG/DAY),
  7. SERTRALINE [Suspect]
     Active Substance: SERTRALINE HYDROCHLORIDE
     Indication: MAJOR DEPRESSION

REACTIONS (2)
  - Generalised tonic-clonic seizure [Recovered/Resolved]
  - Drug interaction [Unknown]
